FAERS Safety Report 4514773-0 (Version None)
Quarter: 2004Q4

REPORT INFORMATION
  Report Type: 
  Country: None (occurrence: None)
  Receive Date: 20041124
  Receipt Date: 20041124
  Transmission Date: 20050328
  Serious: Yes (Hospitalization)
  Sender: FDA-Public Use
  Company Number: None

PATIENT
  Age: 66 Year
  Sex: Male
  Weight: 81.82 kg

DRUGS (1)
  1. VIAGRA [Suspect]
     Dosage: 50MG  AS NEEDED ORAL
     Route: 048
     Dates: start: 20040808, end: 20040808

REACTIONS (1)
  - CHEST PAIN [None]
